FAERS Safety Report 7733828-0 (Version None)
Quarter: 2011Q3

REPORT INFORMATION
  Report Type: 
  Country: None (occurrence: None)
  Receive Date: 20110907
  Receipt Date: 20110831
  Transmission Date: 20111222
  Serious: Yes (Other)
  Sender: FDA-Public Use
  Company Number: US-SANOFI-AVENTIS-2011SA056266

PATIENT
  Sex: Female

DRUGS (8)
  1. THEO-24 [Concomitant]
  2. FEXOFENADINE HYDROCHLORIDE/PSEUDOEPHEDRINE HYDROCHLORIDE [Suspect]
     Dosage: 180/240 MG
     Route: 048
     Dates: start: 20070101
  3. ANTIHISTAMINES [Concomitant]
  4. LEVOXYL [Concomitant]
  5. FLOVENT [Concomitant]
  6. XOPENEX [Concomitant]
  7. ASTHMA TABLET [Concomitant]
  8. FEXOFENADINE HYDROCHLORIDE/PSEUDOEPHEDRINE HYDROCHLORIDE [Suspect]
     Indication: ASTHMA
     Dosage: 180/240 MG
     Route: 048
     Dates: start: 20070101

REACTIONS (4)
  - VISUAL IMPAIRMENT [None]
  - CHEST DISCOMFORT [None]
  - SINUS DISORDER [None]
  - HEADACHE [None]
